FAERS Safety Report 25921778 (Version 1)
Quarter: 2025Q4

REPORT INFORMATION
  Report Type: Spontaneous
  Country: US (occurrence: US)
  Receive Date: 20251014
  Receipt Date: 20251014
  Transmission Date: 20260118
  Serious: No
  Sender: Steriscience PTE
  Company Number: US-STERISCIENCE B.V.-2025-ST-001319

PATIENT
  Age: 32 Year
  Sex: Female

DRUGS (11)
  1. SODIUM BICARBONATE [Suspect]
     Active Substance: SODIUM BICARBONATE
     Indication: Spinal anaesthesia
     Dosage: UNK, 3 CUBIC CENTIMETERS; INFUSION BOLUS
     Route: 008
  2. ENOXAPARIN [Suspect]
     Active Substance: ENOXAPARIN
     Indication: Anticoagulant therapy
     Dosage: 1 MILLIGRAM/KILOGRAM, BID
     Route: 065
  3. ASPIRIN [Suspect]
     Active Substance: ASPIRIN
     Indication: Pre-eclampsia
     Dosage: UNK
     Route: 065
  4. BUPIVACAINE [Suspect]
     Active Substance: BUPIVACAINE
     Indication: Spinal anaesthesia
     Dosage: 3 MILLIGRAM
     Route: 008
  5. LIDOCAINE [Suspect]
     Active Substance: LIDOCAINE
     Indication: Spinal anaesthesia
     Dosage: UNK, 5 CUBIC CENTIMETERS; INFUSION BOLUS
     Route: 008
  6. EPINEPHRINE [Suspect]
     Active Substance: EPINEPHRINE
     Indication: Spinal anaesthesia
     Dosage: UNK, 5 CUBIC CENTIMETERS; INFUSION BOLUS
     Route: 008
  7. EPINEPHRINE [Suspect]
     Active Substance: EPINEPHRINE
     Indication: Cardiac output increased
     Dosage: 0.4 MICROGRAM/KILOGRAM, QMINUTE
     Route: 008
  8. FENTANYL [Suspect]
     Active Substance: FENTANYL
     Indication: Spinal anaesthesia
     Dosage: 15 MICROGRAM, INFUSION BOLUS
     Route: 008
  9. MORPHINE [Suspect]
     Active Substance: MORPHINE
     Indication: Spinal anaesthesia
     Dosage: 100 MICROGRAM, INFUSION BOLUS
     Route: 008
  10. NOREPINEPHRINE [Suspect]
     Active Substance: NOREPINEPHRINE
     Indication: Vasopressive therapy
     Dosage: UNK, 0.04?0.08?G/KG/MIN
     Route: 065
  11. PHENYLEPHRINE [Suspect]
     Active Substance: PHENYLEPHRINE
     Indication: Anaesthesia
     Dosage: 100 MICROGRAM, INFUSION BOLUS
     Route: 065

REACTIONS (2)
  - Off label use [Unknown]
  - Maternal exposure during delivery [Unknown]
